FAERS Safety Report 24422421 (Version 1)
Quarter: 2024Q4

REPORT INFORMATION
  Report Type: Spontaneous
  Country: SK (occurrence: SK)
  Receive Date: 20241010
  Receipt Date: 20241010
  Transmission Date: 20250114
  Serious: Yes (Life-Threatening, Hospitalization, Other)
  Sender: MYLAN
  Company Number: SK-PHARMAGEN-PHARMAGEN20230926b_Lit

PATIENT
  Age: 80 Year
  Sex: Male

DRUGS (5)
  1. SUNITINIB [Suspect]
     Active Substance: SUNITINIB
     Indication: Renal cancer
     Dosage: FIRST LINE THERAPY, ORAL MULTITARGETED TKI WAS ADMINISTERED IN THE LINE OF SYSTEMIC TREATMENT
     Route: 048
  2. SUNITINIB [Suspect]
     Active Substance: SUNITINIB
     Indication: Liver injury
  3. SUNITINIB [Suspect]
     Active Substance: SUNITINIB
     Indication: Renal cancer recurrent
  4. NOREPINEPHRINE [Suspect]
     Active Substance: NOREPINEPHRINE\NOREPINEPHRINE BITARTRATE
     Indication: Liver injury
     Dosage: UNK
     Route: 065
  5. NOREPINEPHRINE [Suspect]
     Active Substance: NOREPINEPHRINE\NOREPINEPHRINE BITARTRATE
     Indication: Renal cancer

REACTIONS (5)
  - Tumour haemorrhage [Recovered/Resolved]
  - Anaemia [Unknown]
  - Melaena [Unknown]
  - Haemodynamic instability [Unknown]
  - Disease recurrence [Unknown]
